FAERS Safety Report 9767030 (Version 1)
Quarter: 2013Q4

REPORT INFORMATION
  Report Type: Spontaneous
  Country: US (occurrence: None)
  Receive Date: 20131216
  Receipt Date: 20131216
  Transmission Date: 20140711
  Serious: Yes (Other)
  Sender: FDA-Public Use
  Company Number: None

PATIENT
  Age: 32 Year
  Sex: Female

DRUGS (1)
  1. HUMIRA 40 MG ABBVIE [Suspect]
     Indication: PSORIASIS
     Route: 058
     Dates: start: 20130827

REACTIONS (3)
  - Hypoaesthesia [None]
  - Injection site erythema [None]
  - Injection site bruising [None]
